FAERS Safety Report 7393736-4 (Version None)
Quarter: 2011Q2

REPORT INFORMATION
  Report Type: 
  Country: None (occurrence: None)
  Receive Date: 20110405
  Receipt Date: 20110323
  Transmission Date: 20111010
  Serious: Yes (Other)
  Sender: FDA-Public Use
  Company Number: US-JNJFOC-20110311249

PATIENT
  Sex: Female

DRUGS (2)
  1. IMODIUM MULTI-SYMPTOM RELIEF [Suspect]
     Route: 048
  2. IMODIUM MULTI-SYMPTOM RELIEF [Suspect]
     Indication: DIARRHOEA
     Dosage: SOME TIMES MORE THAN 2 DAYS
     Route: 048

REACTIONS (4)
  - ADVERSE EVENT [None]
  - DEAFNESS UNILATERAL [None]
  - SINUS DISORDER [None]
  - MALAISE [None]
